FAERS Safety Report 5179348-1 (Version None)
Quarter: 2006Q4

REPORT INFORMATION
  Report Type: 
  Country: None (occurrence: None)
  Receive Date: 20061219
  Receipt Date: 20061214
  Transmission Date: 20070319
  Serious: Yes (Life-Threatening)
  Sender: FDA-Public Use
  Company Number: GB-GLAXOSMITHKLINE-B0451046A

PATIENT
  Age: 84 Year
  Sex: Male

DRUGS (6)
  1. AMOXICILLIN [Suspect]
     Indication: TOOTH INFECTION
     Route: 065
     Dates: start: 20061103, end: 20061103
  2. INFLUENZA VACCINE (UNSPECIFIED) [Suspect]
     Dosage: 1INJ SINGLE DOSE
     Route: 030
     Dates: start: 20061103, end: 20061103
  3. BETAMETHASONE [Concomitant]
     Dosage: 200MG UNKNOWN
     Route: 065
     Dates: start: 20010101
  4. QVAR 40 [Concomitant]
     Dosage: 200MG UNKNOWN
     Route: 055
     Dates: start: 20010101
  5. VENTOLIN [Concomitant]
     Indication: ASTHMA
     Dosage: 100UG AS REQUIRED
     Route: 055
     Dates: start: 19820101
  6. ZOLADEX [Concomitant]
     Indication: PROSTATIC DISORDER
     Route: 065
     Dates: start: 20050118

REACTIONS (5)
  - BLOOD PRESSURE DECREASED [None]
  - DYSPNOEA [None]
  - HYPERSENSITIVITY [None]
  - PRURITUS [None]
  - RASH [None]
